FAERS Safety Report 6944959-7 (Version None)
Quarter: 2010Q3

REPORT INFORMATION
  Report Type: 
  Country: None (occurrence: None)
  Receive Date: 20100827
  Receipt Date: 20100819
  Transmission Date: 20110219
  Serious: Yes (Hospitalization)
  Sender: FDA-Public Use
  Company Number: US-JNJFOC-20100807750

PATIENT
  Sex: Female
  Weight: 36 kg

DRUGS (8)
  1. REMICADE [Suspect]
     Indication: INFLAMMATORY BOWEL DISEASE
     Route: 042
  2. 5-ASA [Concomitant]
     Route: 048
  3. 5-ASA [Concomitant]
     Route: 054
  4. MULTI-VITAMINS [Concomitant]
  5. CALCIUM [Concomitant]
  6. LANSOPRAZOLE [Concomitant]
  7. LACTAID [Concomitant]
  8. ACETAMINOPHEN [Concomitant]

REACTIONS (2)
  - INFLAMMATORY BOWEL DISEASE [None]
  - NUTRITIONAL CONDITION ABNORMAL [None]
